FAERS Safety Report 5465221-8 (Version None)
Quarter: 2007Q3

REPORT INFORMATION
  Report Type: 
  Country: None (occurrence: None)
  Receive Date: 20070924
  Receipt Date: 20070920
  Transmission Date: 20080115
  Serious: Yes (Other)
  Sender: FDA-Public Use
  Company Number: PHEH2007US09937

PATIENT
  Age: 56 Year
  Sex: Female

DRUGS (7)
  1. ZOMETA [Suspect]
     Indication: BREAST CANCER METASTATIC
     Dates: start: 20070501
  2. FEMARA [Concomitant]
  3. EFFEXOR [Concomitant]
  4. CELEBREX [Concomitant]
     Dosage: UNK QD
  5. CELEBREX [Concomitant]
     Dosage: UNK BID
  6. MELATONIN [Concomitant]
  7. ACIDOPHILUS [Concomitant]

REACTIONS (7)
  - ARTHRALGIA [None]
  - BLINDNESS [None]
  - MYALGIA [None]
  - OEDEMA PERIPHERAL [None]
  - PAIN IN JAW [None]
  - PYREXIA [None]
  - VISION BLURRED [None]
